FAERS Safety Report 5902272-0 (Version None)
Quarter: 2008Q3

REPORT INFORMATION
  Report Type: 
  Country: None (occurrence: None)
  Receive Date: 20080929
  Receipt Date: 20080725
  Transmission Date: 20090109
  Serious: No
  Sender: FDA-Public Use
  Company Number: US-BAUSCH-2008BL001926

PATIENT
  Age: 75 Year
  Sex: Female

DRUGS (5)
  1. ALAWAY [Suspect]
     Indication: EYE PRURITUS
     Route: 047
     Dates: start: 20080424, end: 20080424
  2. LEVOXYL [Concomitant]
  3. SPIRIVA [Concomitant]
  4. ZYRTEC [Concomitant]
  5. OMEPRAZOLE [Concomitant]

REACTIONS (2)
  - CONDITION AGGRAVATED [None]
  - EYE PRURITUS [None]
